FAERS Safety Report 10945569 (Version 5)
Quarter: 2015Q3

REPORT INFORMATION
  Report Type: Spontaneous
  Country: JP (occurrence: JP)
  Receive Date: 20150323
  Receipt Date: 20150708
  Transmission Date: 20151125
  Serious: Yes (Hospitalization)
  Sender: FDA-Public Use
  Company Number: JP-JNJFOC-20150311282

PATIENT
  Age: 21 Year
  Sex: Male
  Weight: 57 kg

DRUGS (10)
  1. RITALIN [Concomitant]
     Active Substance: METHYLPHENIDATE HYDROCHLORIDE
     Indication: ATTENTION DEFICIT/HYPERACTIVITY DISORDER
     Dates: start: 20060826, end: 20070112
  2. CONCERTA [Suspect]
     Active Substance: METHYLPHENIDATE HYDROCHLORIDE
     Indication: ATTENTION DEFICIT/HYPERACTIVITY DISORDER
     Route: 048
     Dates: start: 20081017, end: 20150310
  3. CONCERTA [Suspect]
     Active Substance: METHYLPHENIDATE HYDROCHLORIDE
     Indication: ATTENTION DEFICIT/HYPERACTIVITY DISORDER
     Route: 048
     Dates: start: 20080209, end: 20081016
  4. CLOXAZOLAM [Concomitant]
     Active Substance: CLOXAZOLAM
     Indication: ANXIETY
     Route: 048
  5. SODIUM VALPROATE [Concomitant]
     Active Substance: VALPROATE SODIUM
     Indication: RESTLESSNESS
     Route: 048
  6. RITALIN [Concomitant]
     Active Substance: METHYLPHENIDATE HYDROCHLORIDE
     Indication: ATTENTION DEFICIT/HYPERACTIVITY DISORDER
     Dates: start: 20070526, end: 20080208
  7. DIAZEPAM. [Concomitant]
     Active Substance: DIAZEPAM
     Indication: RESTLESSNESS
     Route: 048
  8. LINTON [Concomitant]
     Active Substance: HALOPERIDOL
     Indication: RESTLESSNESS
     Route: 048
  9. RITALIN [Concomitant]
     Active Substance: METHYLPHENIDATE HYDROCHLORIDE
     Indication: ATTENTION DEFICIT/HYPERACTIVITY DISORDER
     Dates: start: 20070113, end: 20070325
  10. RITALIN [Concomitant]
     Active Substance: METHYLPHENIDATE HYDROCHLORIDE
     Indication: ATTENTION DEFICIT/HYPERACTIVITY DISORDER
     Dates: start: 20150304

REACTIONS (5)
  - Somnolence [Recovering/Resolving]
  - Drug dependence [Recovered/Resolved]
  - Intentional overdose [Unknown]
  - Drug withdrawal syndrome [Unknown]
  - Musculoskeletal stiffness [Recovering/Resolving]

NARRATIVE: CASE EVENT DATE: 201410
